FAERS Safety Report 6570620-7 (Version None)
Quarter: 2010Q1

REPORT INFORMATION
  Report Type: 
  Country: None (occurrence: None)
  Receive Date: 20100204
  Receipt Date: 20100128
  Transmission Date: 20100710
  Serious: Yes (Other)
  Sender: FDA-Public Use
  Company Number: DE-PFIZER INC-2010011469

PATIENT
  Sex: Male

DRUGS (2)
  1. GABAPENTIN [Suspect]
     Dosage: UNK
     Route: 048
  2. INTERFERON BETA [Concomitant]
     Indication: MULTIPLE SCLEROSIS
     Dosage: UNK

REACTIONS (1)
  - HYPERKALAEMIA [None]
